FAERS Safety Report 9813970 (Version 1)
Quarter: 2014Q1

REPORT INFORMATION
  Report Type: Spontaneous
  Country: GB (occurrence: GB)
  Receive Date: 20140113
  Receipt Date: 20140113
  Transmission Date: 20141002
  Serious: Yes (Other)
  Sender: FDA-Public Use
  Company Number: PHHY2014GB001785

PATIENT
  Age: 67 Year
  Sex: Female

DRUGS (2)
  1. METRONIDAZOLE [Suspect]
     Indication: TOOTH ABSCESS
     Dosage: 400 MG
     Dates: start: 20131213, end: 20131213
  2. THYROXINE [Concomitant]

REACTIONS (3)
  - Swelling [Recovered/Resolved]
  - Urticaria [Recovered/Resolved]
  - Dyspnoea [Recovered/Resolved]
